FAERS Safety Report 7198518-4 (Version None)
Quarter: 2010Q4

REPORT INFORMATION
  Report Type: 
  Country: None (occurrence: None)
  Receive Date: 20101213
  Receipt Date: 20101108
  Transmission Date: 20110411
  Serious: Yes (Death, Life-Threatening, Hospitalization)
  Sender: FDA-Public Use
  Company Number: 2010CP000287

PATIENT
  Age: 5 Day
  Sex: Female

DRUGS (2)
  1. ACETAMINOPHEN [Suspect]
     Dosage: 30 MILLIGRAMS; 4/1 DAY; IV
     Route: 042
     Dates: start: 20100910, end: 20100916
  2. TEGELINE (NORMAL IMMUNOGLOBULINS) (NO PREF. NAME) [Suspect]
     Dosage: 2 GRAM; IV
     Route: 042
     Dates: start: 20100910

REACTIONS (4)
  - CARDIAC ARREST NEONATAL [None]
  - NECROTISING ENTEROCOLITIS NEONATAL [None]
  - SEPTIC SHOCK [None]
  - STAPHYLOCOCCAL INFECTION [None]
